FAERS Safety Report 16623627 (Version 1)
Quarter: 2019Q3

REPORT INFORMATION
  Report Type: Spontaneous
  Country: DE (occurrence: DE)
  Receive Date: 20190724
  Receipt Date: 20190724
  Transmission Date: 20191004
  Serious: Yes (Other)
  Sender: FDA-Public Use
  Company Number: DE-TEVA-2019-DE-1081968

PATIENT
  Age: 1 Day
  Sex: Male
  Weight: 2.83 kg

DRUGS (7)
  1. ARIXTRA [Concomitant]
     Active Substance: FONDAPARINUX SODIUM
     Indication: PROPHYLAXIS
     Dosage: 2.5 MILLIGRAM DAILY; 2.5 [MG/D ]
     Route: 064
     Dates: start: 20180213, end: 20181102
  2. L-THYROXIN [Concomitant]
     Active Substance: LEVOTHYROXINE SODIUM
     Indication: AUTOIMMUNE THYROIDITIS
     Dosage: 37.5 MICROGRAM DAILY; 37.5 [?G/D ]
     Route: 064
     Dates: start: 20180213, end: 20181102
  3. RAMIPRIL. [Concomitant]
     Active Substance: RAMIPRIL
     Indication: HYPERTENSION
     Dosage: 5 MILLIGRAM DAILY; 5 [MG/D ]
     Route: 064
  4. AMLODIPINE [Concomitant]
     Active Substance: AMLODIPINE BESYLATE
     Indication: HYPERTENSION
     Route: 064
  5. METOPROLOL. [Suspect]
     Active Substance: METOPROLOL
     Indication: HYPERTENSION
     Dosage: 95 [MG/D ]/ VARYING DOSAGE 23.75 - 95.0 MG/D
     Route: 064
     Dates: start: 20180213, end: 20181102
  6. UTROGEST [Concomitant]
     Active Substance: PROGESTERONE
     Indication: PROPHYLAXIS
     Dosage: 200 MILLIGRAM DAILY; 200 [MG/D ] 2 SEPARATED DOSES
     Route: 064
     Dates: start: 20180213, end: 20181102
  7. DOPEGYT [Concomitant]
     Active Substance: METHYLDOPA
     Indication: HYPERTENSION
     Dosage: 750 MILLIGRAM DAILY; 750 [MG/D ] 3 SEPARATED DOSES
     Route: 064

REACTIONS (2)
  - Hypoglycaemia neonatal [Recovered/Resolved]
  - Foetal exposure during pregnancy [Recovered/Resolved]

NARRATIVE: CASE EVENT DATE: 20181102
